FAERS Safety Report 8345724-9 (Version None)
Quarter: 2012Q2

REPORT INFORMATION
  Report Type: 
  Country: None (occurrence: None)
  Receive Date: 20120508
  Receipt Date: 20120425
  Transmission Date: 20120825
  Serious: Yes (Hospitalization)
  Sender: FDA-Public Use
  Company Number: US-ELI_LILLY_AND_COMPANY-US201006002846

PATIENT
  Sex: Female
  Weight: 68.481 kg

DRUGS (16)
  1. CALCIUM [Concomitant]
     Dosage: 600 MG, DAILY
  2. VITAMIN D [Concomitant]
     Indication: VITAMIN D DECREASED
     Dosage: 1000 U, DAILY
  3. GLUCOSAMINE [Concomitant]
     Dosage: 1500 U, QD
  4. FORTEO [Suspect]
     Indication: OSTEOPOROSIS
     Dosage: 20 UG, QD
     Route: 058
  5. FORTEO [Suspect]
     Dosage: 20 UG, QD
     Route: 058
  6. FORTEO [Suspect]
     Dosage: 20 UG, QD
     Route: 058
     Dates: end: 20111211
  7. MULTI-VITAMIN [Concomitant]
  8. VITAMIN D [Concomitant]
     Dosage: 1000 MG, DAILY
  9. FORTEO [Suspect]
     Dosage: 20 UG, QD
     Route: 058
  10. FORTEO [Suspect]
     Dosage: 20 UG, QD
     Route: 058
  11. VITAMIN TAB [Concomitant]
     Dosage: UNK, DAILY
  12. CALCIUM W/VITAMIN D NOS [Concomitant]
  13. FORTEO [Suspect]
     Dosage: 20 UG, QD
     Route: 058
  14. MECLIZINE [Concomitant]
     Indication: VERTIGO
  15. FORTEO [Suspect]
     Dosage: 20 UG, QD
     Route: 058
     Dates: start: 20100709
  16. VITAMIN D [Concomitant]
     Dosage: 4000 IU, QD

REACTIONS (14)
  - INJECTION SITE HAEMORRHAGE [None]
  - DIZZINESS [None]
  - VERTIGO [None]
  - INJECTION SITE HAEMATOMA [None]
  - RENAL CYST [None]
  - PANCREATIC DUCT DILATATION [None]
  - SOMNOLENCE [None]
  - OSTEOPOROSIS [None]
  - DEPRESSED MOOD [None]
  - DYSPEPSIA [None]
  - CHEST PAIN [None]
  - LUMBAR RADICULOPATHY [None]
  - OEDEMA PERIPHERAL [None]
  - NAUSEA [None]
